FAERS Safety Report 13093465 (Version 3)
Quarter: 2017Q1

REPORT INFORMATION
  Report Type: Spontaneous
  Country: US (occurrence: US)
  Receive Date: 20170106
  Receipt Date: 20170125
  Transmission Date: 20170428
  Serious: Yes (Hospitalization, Other)
  Sender: FDA-Public Use
  Company Number: US-SAOL THERAPEUTICS-2017SAO00008

PATIENT
  Age: 44 Year
  Sex: Male

DRUGS (4)
  1. BACLOFEN. [Suspect]
     Active Substance: BACLOFEN
     Dosage: 957.5 ?G, \DAY
     Route: 037
  2. CLONIDINE. [Suspect]
     Active Substance: CLONIDINE
     Dosage: 478.8 ?G, \DAY
     Route: 037
  3. DILAUDID [Suspect]
     Active Substance: HYDROMORPHONE HYDROCHLORIDE
     Dosage: 4.788 MG, \DAY
     Route: 037
  4. BUPIVACAINE. [Suspect]
     Active Substance: BUPIVACAINE
     Dosage: 17.953 MG, \DAY
     Route: 037

REACTIONS (10)
  - Loss of consciousness [Unknown]
  - Spinal fracture [Unknown]
  - Pain in extremity [Unknown]
  - Overdose [Unknown]
  - Therapeutic response decreased [Unknown]
  - Respiratory depression [Unknown]
  - Pneumonia aspiration [Unknown]
  - Fall [Unknown]
  - Pain [Unknown]
  - Complication associated with device [Unknown]

NARRATIVE: CASE EVENT DATE: 201612
